FAERS Safety Report 4355768-X (Version None)
Quarter: 2004Q2

REPORT INFORMATION
  Report Type: 
  Country: None (occurrence: None)
  Receive Date: 20040505
  Receipt Date: 20040126
  Transmission Date: 20050107
  Serious: Yes (Other)
  Sender: FDA-Public Use
  Company Number: 230019M04USA

PATIENT
  Age: 50 Year
  Sex: Female

DRUGS (3)
  1. REBIF [Suspect]
     Indication: MULTIPLE SCLEROSIS
     Dosage: 44 MCG, 3 IN 1 WEEKS
     Dates: start: 20030301, end: 20031201
  2. ESTRADIOL [Concomitant]
  3. VALACYCLOVIR HCL [Concomitant]

REACTIONS (4)
  - INFLUENZA [None]
  - PIGMENTED NAEVUS [None]
  - SINUSITIS [None]
  - SQUAMOUS CELL CARCINOMA [None]
